FAERS Safety Report 13284973 (Version 3)
Quarter: 2018Q4

REPORT INFORMATION
  Report Type: Spontaneous
  Country: US (occurrence: US)
  Receive Date: 20170301
  Receipt Date: 20181211
  Transmission Date: 20190204
  Serious: No
  Sender: FDA-Public Use
  Company Number: US-PFIZER INC-2017083560

PATIENT
  Age: 49 Year
  Sex: Female
  Weight: 79.38 kg

DRUGS (5)
  1. LYRICA [Suspect]
     Active Substance: PREGABALIN
     Dosage: UNK
  2. LYRICA [Suspect]
     Active Substance: PREGABALIN
     Indication: FIBROMYALGIA
     Dosage: 2 DF, DAILY
  3. LORAZEPAM. [Concomitant]
     Active Substance: LORAZEPAM
     Indication: ANXIETY
     Dosage: 0.5 MG, UNK
  4. LYRICA [Suspect]
     Active Substance: PREGABALIN
     Indication: SCIATIC NERVE INJURY
     Dosage: 100 MG, ONE AT BEDTIME
  5. LORAZEPAM. [Concomitant]
     Active Substance: LORAZEPAM
     Dosage: 1 MG, AS NEEDED

REACTIONS (18)
  - Therapeutic response unexpected [Unknown]
  - Pre-existing condition improved [Unknown]
  - Feeling abnormal [Unknown]
  - Abdominal pain upper [Not Recovered/Not Resolved]
  - Pain [Not Recovered/Not Resolved]
  - Vision blurred [Unknown]
  - Feeling of body temperature change [Unknown]
  - Diarrhoea [Unknown]
  - Expired product administered [Unknown]
  - Nausea [Not Recovered/Not Resolved]
  - Neuralgia [Not Recovered/Not Resolved]
  - Withdrawal syndrome [Unknown]
  - Malaise [Unknown]
  - Intentional product misuse [Unknown]
  - Feeding disorder [Not Recovered/Not Resolved]
  - Musculoskeletal stiffness [Not Recovered/Not Resolved]
  - Hyperhidrosis [Unknown]
  - Vomiting [Unknown]

NARRATIVE: CASE EVENT DATE: 2017
